FAERS Safety Report 9548599 (Version 1)
Quarter: 2013Q2

REPORT INFORMATION
  Report Type: Spontaneous
  Country: US (occurrence: None)
  Receive Date: 20130606
  Receipt Date: 20130606
  Transmission Date: 20140414
  Serious: No
  Sender: FDA-Public Use
  Company Number: 1303USA000741

PATIENT
  Sex: 0

DRUGS (1)
  1. ZIOPTAN (TAFLUPROST) EYE DROPS, SOLUTION [Suspect]
     Route: 047

REACTIONS (2)
  - Hair growth abnormal [None]
  - Skin discolouration [None]
